FAERS Safety Report 5368092-3 (Version None)
Quarter: 2007Q2

REPORT INFORMATION
  Report Type: 
  Country: None (occurrence: None)
  Receive Date: 20070622
  Receipt Date: 20070615
  Transmission Date: 20071010
  Serious: Yes (Hospitalization)
  Sender: FDA-Public Use
  Company Number: JP-MERCK-0703USA03803

PATIENT
  Age: 58 Year
  Sex: Female

DRUGS (9)
  1. PEPCID [Suspect]
     Route: 048
     Dates: start: 20061228, end: 20070308
  2. DIOVAN [Concomitant]
     Indication: HYPERTENSION
     Route: 048
  3. NORVASC [Concomitant]
     Indication: HYPERTENSION
     Route: 048
  4. CARBAMAZEPINE [Concomitant]
     Indication: EPILEPSY
     Route: 048
  5. LASIX [Concomitant]
     Indication: RENAL FAILURE CHRONIC
     Route: 048
  6. ALDACTONE [Concomitant]
     Indication: RENAL FAILURE CHRONIC
     Route: 048
  7. CALTAN [Concomitant]
     Indication: RENAL FAILURE CHRONIC
     Route: 048
     Dates: end: 20070319
  8. CARDENALIN [Concomitant]
     Indication: HYPERTENSION
     Route: 048
  9. SEROQUEL [Concomitant]
     Route: 048

REACTIONS (2)
  - DISORIENTATION [None]
  - HALLUCINATION [None]
